FAERS Safety Report 10683633 (Version 1)
Quarter: 2014Q4

REPORT INFORMATION
  Report Type: Spontaneous
  Country: US (occurrence: US)
  Receive Date: 20141230
  Receipt Date: 20141230
  Transmission Date: 20150529
  Serious: No
  Sender: FDA-Public Use
  Company Number: US-TEVA-528480USA

PATIENT
  Age: 54 Year
  Sex: Female
  Weight: 86.26 kg

DRUGS (1)
  1. ACTIQ [Suspect]
     Active Substance: FENTANYL CITRATE
     Route: 065

REACTIONS (2)
  - Exposure via direct contact [Recovered/Resolved]
  - Drug screen positive [Recovered/Resolved]

NARRATIVE: CASE EVENT DATE: 201411
